FAERS Safety Report 16164935 (Version 2)
Quarter: 2019Q2

REPORT INFORMATION
  Report Type: Spontaneous
  Country: US (occurrence: US)
  Receive Date: 20190405
  Receipt Date: 20190524
  Transmission Date: 20190711
  Serious: Yes (Other)
  Sender: FDA-Public Use
  Company Number: US-PURDUE-USA-2019-0146750

PATIENT
  Sex: Female

DRUGS (1)
  1. OXYCODONE/ ACETAMINOPHEN TABLETS [Suspect]
     Active Substance: ACETAMINOPHEN\OXYCODONE HYDROCHLORIDE
     Indication: BACK PAIN
     Dosage: 5MG/325MG TABLET, UNK
     Route: 048
     Dates: start: 2014

REACTIONS (5)
  - Intervertebral disc degeneration [Unknown]
  - Arthritis [Unknown]
  - Therapeutic product effect decreased [Unknown]
  - Stenosis [Unknown]
  - Pain [Unknown]
